FAERS Safety Report 4287678-0 (Version None)
Quarter: 2004Q1

REPORT INFORMATION
  Report Type: 
  Country: None (occurrence: None)
  Receive Date: 20040205
  Receipt Date: 20040115
  Transmission Date: 20041129
  Serious: Yes (Hospitalization)
  Sender: FDA-Public Use
  Company Number: USA040156776

PATIENT
  Age: 49 Year
  Sex: Female

DRUGS (1)
  1. PROZAC [Suspect]
     Indication: DEPRESSION
     Dosage: 20 MG/2 DAY

REACTIONS (2)
  - DYSPEPSIA [None]
  - POST PROCEDURAL COMPLICATION [None]
